FAERS Safety Report 5060329-3 (Version None)
Quarter: 2006Q3

REPORT INFORMATION
  Report Type: 
  Country: None (occurrence: None)
  Receive Date: 20060718
  Receipt Date: 20060629
  Transmission Date: 20061208
  Serious: Yes (Other)
  Sender: FDA-Public Use
  Company Number: US200605002196

PATIENT
  Age: 73 Year
  Sex: Male

DRUGS (4)
  1. HUMALOG MIX 75/25 [Suspect]
     Indication: DIABETES MELLITUS
     Dosage: AS NEEDED
     Dates: start: 20000101
  2. HUMALOG MIX 25L / 75NPL PEN (HUMALOG MIX 25L // 75NPL PEN) PEN, DISPOS [Concomitant]
  3. HUMALOG MIX 25L / 75NPL PEN (HUMALOG MIX 25L / 75NPL PEN), PEN, DISPOS [Concomitant]
  4. HUMALOG MIX 25L / 75NPL PEN (HUMALOG MIX 25L / 75NPL PEN), PEN, DISPOS [Concomitant]

REACTIONS (7)
  - BLINDNESS UNILATERAL [None]
  - DEVICE FAILURE [None]
  - DIABETIC EYE DISEASE [None]
  - EYE OPERATION [None]
  - PANCREATITIS [None]
  - PHARMACEUTICAL PRODUCT COMPLAINT [None]
  - VISUAL DISTURBANCE [None]
